FAERS Safety Report 15941719 (Version 3)
Quarter: 2019Q1

REPORT INFORMATION
  Report Type: Report from Study
  Country: FR (occurrence: FR)
  Receive Date: 20190208
  Receipt Date: 20190306
  Transmission Date: 20190417
  Serious: Yes (Death, Hospitalization, Other)
  Sender: FDA-Public Use
  Company Number: FR-SEATTLE GENETICS-2019SGN00246

PATIENT
  Age: 66 Year
  Sex: Male
  Weight: 120 kg

DRUGS (6)
  1. CYCLOPHOSPHAMIDE                          /00021101/ [Concomitant]
     Indication: T-CELL LYMPHOMA
     Dosage: UNK
     Route: 065
  2. DEXCHLORPHENIRAMINE MALEATE. [Concomitant]
     Active Substance: DEXCHLORPHENIRAMINE MALEATE
     Dosage: 5 UNK
     Route: 042
  3. CYCLOPHOSPHAMIDE                          /00021101/ [Concomitant]
     Dosage: UNK
     Route: 065
  4. BRENTUXIMAB VEDOTIN-MPI [Suspect]
     Active Substance: BRENTUXIMAB VEDOTIN
     Indication: T-CELL LYMPHOMA
     Dosage: 180 MG, UNK
     Route: 042
     Dates: start: 20180910
  5. CYCLOPHOSPHAMIDE                          /00021101/ [Concomitant]
     Dosage: UNK
     Route: 065
  6. METHYLPREDNISOLONE SODIUM SUCCINATE. [Concomitant]
     Active Substance: METHYLPREDNISOLONE SODIUM SUCCINATE
     Dosage: 80 MILLIGRAM
     Route: 065

REACTIONS (11)
  - Fall [Not Recovered/Not Resolved]
  - Peripheral T-cell lymphoma unspecified [Fatal]
  - Crepitations [Unknown]
  - Off label use [Unknown]
  - Motor dysfunction [Unknown]
  - Sciatica [Unknown]
  - Diarrhoea [Recovered/Resolved]
  - General physical health deterioration [Recovered/Resolved with Sequelae]
  - Nerve compression [Unknown]
  - Skin lesion [Not Recovered/Not Resolved]
  - Gait disturbance [Unknown]

NARRATIVE: CASE EVENT DATE: 201809
